FAERS Safety Report 20419692 (Version 1)
Quarter: 2022Q1

REPORT INFORMATION
  Report Type: Spontaneous
  Country: CA (occurrence: CA)
  Receive Date: 20220203
  Receipt Date: 20220203
  Transmission Date: 20220423
  Serious: Yes (Other)
  Sender: FDA-Public Use
  Company Number: CA-AUROBINDO-AUR-APL-2022-002413

PATIENT
  Sex: Female

DRUGS (1)
  1. MODAFINIL [Suspect]
     Active Substance: MODAFINIL
     Indication: Brain injury
     Dosage: UNK
     Route: 065

REACTIONS (6)
  - Burnout syndrome [Unknown]
  - Hypokinesia [Unknown]
  - Mental disorder [Unknown]
  - Nervous system disorder [Unknown]
  - Vital functions abnormal [Unknown]
  - Therapeutic product effect decreased [Unknown]
